FAERS Safety Report 5979954-8 (Version None)
Quarter: 2008Q4

REPORT INFORMATION
  Report Type: 
  Country: None (occurrence: None)
  Receive Date: 20081205
  Receipt Date: 20081201
  Transmission Date: 20090506
  Serious: Yes (Death)
  Sender: FDA-Public Use
  Company Number: US-JNJFOC-20081200884

PATIENT
  Age: 64 Year
  Sex: Female

DRUGS (1)
  1. HALDOL [Suspect]
     Indication: HUNTINGTON'S CHOREA
     Route: 065

REACTIONS (1)
  - DEATH [None]
